FAERS Safety Report 23130693 (Version 1)
Quarter: 2023Q4

REPORT INFORMATION
  Report Type: Spontaneous
  Country: IT (occurrence: IT)
  Receive Date: 20231031
  Receipt Date: 20231031
  Transmission Date: 20240110
  Serious: Yes (Other)
  Sender: FDA-Public Use
  Company Number: None

PATIENT
  Age: 74 Year
  Sex: Male
  Weight: 62 kg

DRUGS (14)
  1. ZALTRAP [Suspect]
     Active Substance: ZIV-AFLIBERCEPT
     Indication: Metastases to lung
     Dosage: 4 CYCLE/ 1ST DAY WITH ZALTRAP* 1FL 8 ML 200 MG 25 MG/ML; DOSE ADMINISTERED: 260 MG I.V. IN 60 MIN; A
     Route: 042
     Dates: start: 20230807, end: 20231016
  2. ZALTRAP [Suspect]
     Active Substance: ZIV-AFLIBERCEPT
     Indication: Adenocarcinoma of colon
     Dosage: 260 MG
     Route: 042
     Dates: start: 20230807, end: 20231016
  3. METFORMIN HYDROCHLORIDE [Concomitant]
     Active Substance: METFORMIN HYDROCHLORIDE
     Indication: Adverse drug reaction
     Dosage: CODE RNF 946681 - SLOWMET*60 TABLET 500 MG RP - 1 TABLET PER DAY.
     Route: 048
     Dates: start: 202309
  4. METFORMIN HYDROCHLORIDE [Concomitant]
     Active Substance: METFORMIN HYDROCHLORIDE
     Indication: Hypertension
  5. PANTOPRAZOLE SODIUM [Concomitant]
     Active Substance: PANTOPRAZOLE SODIUM
     Indication: Gastrooesophageal reflux disease
     Dosage: 1 DF, QD
     Route: 048
     Dates: start: 2023
  6. GRANISETRON [Concomitant]
     Active Substance: GRANISETRON
     Indication: Chemotherapy side effect prophylaxis
     Dosage: GRANISETRON (PA) ADMINISTERED 3 MG I.V. PER AFLIBARCEPT PROTOCOL WITH REPEATS EVERY 15 DAYS.
     Route: 042
     Dates: start: 20230807, end: 20231016
  7. GRANISETRON [Concomitant]
     Active Substance: GRANISETRON
     Indication: Vomiting
  8. METOPROLOL TARTRATE [Concomitant]
     Active Substance: METOPROLOL TARTRATE
     Indication: Hypertension
     Dosage: RNF CODE 946681 - LOPRESOR* 30 TABLET RIV 100 MG - 1/4 TABLET 8 A.M.
     Route: 048
     Dates: start: 202309
  9. METOPROLOL TARTRATE [Concomitant]
     Active Substance: METOPROLOL TARTRATE
     Indication: Adverse drug reaction
  10. LASIX [Concomitant]
     Active Substance: FUROSEMIDE
     Indication: Hypertension
     Dosage: 2 DF, QD LASIX*30 TABLET 25 MG- 1 TABLET 8 A.M. AND 1 TABLET 3 P.M.
     Route: 048
     Dates: start: 2023
  11. CARDURA [Concomitant]
     Active Substance: DOXAZOSIN MESYLATE
     Indication: Adverse drug reaction
     Dosage: RNF CODE 946681 - CARDURA* 30 TABLET DIV 2 MG- 1 TABLET HRS 13:00
     Route: 048
     Dates: start: 202309
  12. CARDURA [Concomitant]
     Active Substance: DOXAZOSIN MESYLATE
     Indication: Hypertension
  13. DEXAMETHASONE [Concomitant]
     Active Substance: DEXAMETHASONE
     Indication: Chemotherapy side effect prophylaxis
     Dosage: DESAMETASONE (PA) ADMINISTERED 4 MG I.V. PER AFLIBARCEPT PROTOCOL WITH REPEATS EVERY 15 DAYS.
     Route: 042
     Dates: start: 20230807, end: 20231016
  14. DEXAMETHASONE [Concomitant]
     Active Substance: DEXAMETHASONE
     Indication: Steroid therapy

REACTIONS (7)
  - Ascites [Not Recovered/Not Resolved]
  - Thrombocytopenia [Not Recovered/Not Resolved]
  - Dysgeusia [Not Recovered/Not Resolved]
  - Peripheral swelling [Not Recovered/Not Resolved]
  - Abdominal distension [Not Recovered/Not Resolved]
  - Depression [Not Recovered/Not Resolved]
  - Asthenia [Not Recovered/Not Resolved]

NARRATIVE: CASE EVENT DATE: 20231016
